FAERS Safety Report 21809237 (Version 4)
Quarter: 2023Q1

REPORT INFORMATION
  Report Type: Report from Study
  Country: CA (occurrence: CA)
  Receive Date: 20230103
  Receipt Date: 20230131
  Transmission Date: 20230417
  Serious: Yes (Other)
  Sender: FDA-Public Use
  Company Number: CA-JNJFOC-20221265246

PATIENT
  Age: 40 Year
  Sex: Female

DRUGS (1)
  1. SIMPONI [Suspect]
     Active Substance: GOLIMUMAB
     Indication: Ankylosing spondylitis
     Dosage: 50.00 MG / 0.50 ML
     Route: 058
     Dates: start: 20210811

REACTIONS (7)
  - Ankylosing spondylitis [Not Recovered/Not Resolved]
  - Feeling hot [Unknown]
  - Scab [Unknown]
  - Dry eye [Unknown]
  - Alopecia [Unknown]
  - Drug ineffective [Unknown]
  - Skin disorder [Unknown]
